FAERS Safety Report 5148805-6 (Version None)
Quarter: 2006Q4

REPORT INFORMATION
  Report Type: 
  Country: None (occurrence: None)
  Receive Date: 20061107
  Receipt Date: 20061027
  Transmission Date: 20070319
  Serious: Yes (Other)
  Sender: FDA-Public Use
  Company Number: US-2006-033213

PATIENT
  Age: 1 Month

DRUGS (1)
  1. BETAPACE [Suspect]
     Indication: SUPRAVENTRICULAR TACHYCARDIA
     Dosage: NASOGASTRIC

REACTIONS (1)
  - HYPOTHERMIA NEONATAL [None]
